FAERS Safety Report 5649830-9 (Version None)
Quarter: 2008Q1

REPORT INFORMATION
  Report Type: 
  Country: None (occurrence: None)
  Receive Date: 20080131
  Receipt Date: 20071003
  Transmission Date: 20080703
  Serious: No
  Sender: FDA-Public Use
  Company Number: 2007PV029031

PATIENT
  Age: 59 Year
  Sex: Male
  Weight: 136.1 kg

DRUGS (3)
  1. EXENATIDE(EXENATIDE) PEN,DISPOSABLE [Suspect]
     Indication: DRUG USE FOR UNKNOWN INDICATION
     Dosage: 10 UCI, 2/D, SUBCUTANEOUS
     Route: 058
     Dates: start: 20050101
  2. HUMALOG [Concomitant]
  3. HUMATROPE [Concomitant]

REACTIONS (2)
  - ANOREXIA [None]
  - DECREASED APPETITE [None]
